FAERS Safety Report 11929983 (Version 1)
Quarter: 2016Q1

REPORT INFORMATION
  Report Type: Spontaneous
  Country: US (occurrence: None)
  Receive Date: 20160119
  Receipt Date: 20160119
  Transmission Date: 20160526
  Serious: Yes (Other)
  Sender: FDA-Public Use
  Company Number: None

PATIENT
  Age: 32 Year
  Sex: Female
  Weight: 55.79 kg

DRUGS (3)
  1. KETOCONAZOLE SHAMPOO 2% PATRIOT PHARMACEUTICALS [Suspect]
     Active Substance: KETOCONAZOLE
     Indication: DRY SKIN
     Dosage: WASH THREE TIMES PER WEEK  AS NEEDED APPLIED TO A SURFACE, USUALLY THE SKIN
     Dates: start: 20151228, end: 20160106
  2. MULTIVITAMINS [Concomitant]
     Active Substance: VITAMINS
  3. VITAMINS [Concomitant]
     Active Substance: VITAMINS

REACTIONS (1)
  - Alopecia [None]

NARRATIVE: CASE EVENT DATE: 20160101
